FAERS Safety Report 15475043 (Version 5)
Quarter: 2022Q4

REPORT INFORMATION
  Report Type: Spontaneous
  Country: FR (occurrence: FR)
  Receive Date: 20181008
  Receipt Date: 20221216
  Transmission Date: 20230113
  Serious: Yes (Other)
  Sender: FDA-Public Use
  Company Number: FR-JNJFOC-20180513946

PATIENT
  Age: 25 Year
  Sex: Male
  Weight: 58 kg

DRUGS (36)
  1. LINEZOLID [Suspect]
     Active Substance: LINEZOLID
     Indication: Pulmonary tuberculosis
     Dosage: 600 MILLIGRAM, QD (DOSAGE FORM: UNSPECIFIED)
     Route: 065
  2. LINEZOLID [Suspect]
     Active Substance: LINEZOLID
     Indication: Antibiotic prophylaxis
     Dosage: 1200 MILLIGRAM, QD (DOSAGE FORM: UNSPECIFIED)
     Route: 065
  3. LEVOFLOXACIN [Suspect]
     Active Substance: LEVOFLOXACIN
     Indication: Antibiotic prophylaxis
     Dosage: 750 MILLIGRAM, QD (DOSAGE FORM: UNSPECIFIED)
     Route: 065
  4. LEVOFLOXACIN [Suspect]
     Active Substance: LEVOFLOXACIN
     Dosage: 1 GRAM, QD (DOSAGE FORM: UNSPECIFIED)
     Route: 065
  5. AMIKACIN [Suspect]
     Active Substance: AMIKACIN
     Indication: Antibiotic prophylaxis
     Dosage: 600 MILLIGRAM, Q2D (DOSAGE FORM: UNSPECIFIED)
     Route: 065
  6. AMIKACIN [Suspect]
     Active Substance: AMIKACIN
     Dosage: 500 MILLIGRAM, QD (DOSAGE FORM: UNSPECIFIED)
     Route: 065
  7. PASER [Suspect]
     Active Substance: AMINOSALICYLIC ACID
     Indication: Antibiotic prophylaxis
     Dosage: DOSAGE FORM: UNSPECIFIED
     Route: 065
  8. AMINOSALICYLATE SODIUM [Suspect]
     Active Substance: AMINOSALICYLATE SODIUM
     Indication: Antibiotic prophylaxis
     Dosage: 1 DOSAGE FORM,QD(DOSAGE FORM:UNSPECIFIED,1BOTTLE)
     Route: 065
  9. AMINOSALICYLATE SODIUM [Suspect]
     Active Substance: AMINOSALICYLATE SODIUM
     Dosage: 11.82 GRAM, QD (DOSAGE FORM: UNSPECIFIED)
     Route: 065
  10. MOXIFLOXACIN HYDROCHLORIDE [Suspect]
     Active Substance: MOXIFLOXACIN HYDROCHLORIDE
     Indication: Antibiotic prophylaxis
     Dosage: 800 MILLIGRAM, QD (DOSAGE FORM: UNSPECIFIED)
     Route: 065
  11. TRECATOR [Suspect]
     Active Substance: ETHIONAMIDE
     Indication: Antibiotic prophylaxis
     Dosage: 250 MILLIGRAM, QD (DOSAGE FORM: UNSPECIFIED)
     Route: 065
  12. CYCLOSERINE [Suspect]
     Active Substance: CYCLOSERINE
     Indication: Antibiotic prophylaxis
     Dosage: 250 MILLIGRAM, Q2D (DOSAGE FORM: UNSPECIFIED)
     Route: 065
  13. CYCLOSERINE [Suspect]
     Active Substance: CYCLOSERINE
     Dosage: 500 MILLIGRAM, Q2D (DOSAGE FORM: UNSPECIFIED)
     Route: 065
  14. DELAMANID [Suspect]
     Active Substance: DELAMANID
     Indication: Pulmonary tuberculosis
     Dosage: DOSAGE FORM: UNSPECIFIED
     Route: 065
  15. AMINOSALICYLIC ACID [Suspect]
     Active Substance: AMINOSALICYLIC ACID
     Indication: Antibiotic prophylaxis
     Dosage: 150MILLIGRAM/KILOGRAM,QD(DOSAGE FORM:UNSPECIFIED)
     Route: 065
  16. CLOFAZIMINE [Suspect]
     Active Substance: CLOFAZIMINE
     Indication: Pulmonary tuberculosis
     Dosage: DOSAGE FORM: UNSPECIFIED
     Route: 065
     Dates: start: 20150724, end: 20150909
  17. CLOFAZIMINE [Suspect]
     Active Substance: CLOFAZIMINE
     Indication: Antibiotic prophylaxis
  18. BEDAQUILINE [Suspect]
     Active Substance: BEDAQUILINE
     Indication: Pulmonary tuberculosis
     Dosage: 600 MILLIGRAM, QW
     Route: 065
     Dates: start: 20150314
  19. BEDAQUILINE [Suspect]
     Active Substance: BEDAQUILINE
     Indication: Tuberculosis
     Dosage: 600 MILLIGRAM, QW
     Route: 065
     Dates: start: 20150323
  20. PYRAZINAMIDE [Suspect]
     Active Substance: PYRAZINAMIDE
     Indication: Antibiotic prophylaxis
     Dosage: DOSAGE FORM: UNSPECIFIED
     Route: 065
  21. MOXIFLOXACIN [Concomitant]
     Active Substance: MOXIFLOXACIN
     Indication: Pulmonary tuberculosis
     Dosage: 400 MILLIGRAM, QD (DOSAGE FORM: UNSPECIFIED)
     Route: 065
  22. SERETIDE [Concomitant]
     Active Substance: FLUTICASONE PROPIONATE\SALMETEROL XINAFOATE
     Dosage: DOSAGE FORM: UNSPECIFIED
     Route: 065
  23. FOLIC ACID [Concomitant]
     Active Substance: FOLIC ACID
     Dosage: 5 MILLIGRAM (DOSAGE FORM: UNSPECIFIED)
     Route: 065
  24. PYRIDOXINE [Concomitant]
     Active Substance: PYRIDOXINE
     Dosage: DOSAGE FORM: UNSPECIFIED
     Route: 065
  25. DAFALGAN [Concomitant]
     Active Substance: ACETAMINOPHEN
     Dosage: DOSAGE FORM: UNSPECIFIED
     Route: 065
  26. PHLOROGLUCINOL [Concomitant]
     Active Substance: PHLOROGLUCINOL
     Dosage: DOSAGE FORM: UNSPECIFIED
     Route: 065
  27. MAGNESPASMYL [Concomitant]
     Dosage: DOSAGE FORM: UNSPECIFIED
     Route: 065
  28. CETORNAN [Concomitant]
     Dosage: 10 GRAM (DOSAGE FORM: UNSPECIFIED)
     Route: 065
  29. ALBUTEROL [Concomitant]
     Active Substance: ALBUTEROL
     Dosage: DOSAGE FORM: UNSPECIFIED
     Route: 065
  30. RANITIDINE HYDROCHLORIDE [Concomitant]
     Active Substance: RANITIDINE HYDROCHLORIDE
     Dosage: DOSAGE FORM: UNSPECIFIED
     Route: 065
  31. DIMETANE [Concomitant]
     Active Substance: BROMPHENIRAMINE MALEATE
     Dosage: DOSAGE FORM: UNSPECIFIED
     Route: 065
  32. FERROUS SULFATE [Concomitant]
     Active Substance: FERROUS SULFATE
     Dosage: DOSAGE FORM: UNSPECIFIED
     Route: 065
  33. Princi-b [Concomitant]
     Dosage: DOSAGE FORM: UNSPECIFIED
     Route: 065
  34. ZOLPIDEM TARTRATE [Concomitant]
     Active Substance: ZOLPIDEM TARTRATE
     Dosage: 5 MILLIGRAM (DOSAGE FORM: UNSPECIFIED)
     Route: 065
  35. CETYLPYRIDINIUM CHLORIDE\LYSOZYME HYDROCHLORIDE [Concomitant]
     Active Substance: CETYLPYRIDINIUM CHLORIDE\LYSOZYME HYDROCHLORIDE
     Dosage: DOSAGE FORM: UNSPECIFIED
     Route: 065
  36. PRIMPERAN [Concomitant]
     Active Substance: METOCLOPRAMIDE HYDROCHLORIDE
     Dosage: 10 MILLIGRAM (DOSAGE FORM: UNSPECIFIED)
     Route: 065

REACTIONS (11)
  - Osteonecrosis [Unknown]
  - Tuberculosis [Unknown]
  - Electrocardiogram QT prolonged [Recovered/Resolved]
  - Neuropathy peripheral [Unknown]
  - Electrocardiogram repolarisation abnormality [Unknown]
  - Polyneuropathy [Unknown]
  - Product use in unapproved indication [Unknown]
  - Arthritis [Unknown]
  - Malaise [Unknown]
  - Hypotension [Unknown]
  - Off label use [Unknown]

NARRATIVE: CASE EVENT DATE: 20150501
